FAERS Safety Report 24645826 (Version 1)
Quarter: 2024Q4

REPORT INFORMATION
  Report Type: Spontaneous
  Country: JP (occurrence: JP)
  Receive Date: 20241121
  Receipt Date: 20241121
  Transmission Date: 20250115
  Serious: Yes (Other)
  Sender: JOHNSON AND JOHNSON
  Company Number: JP-JNJFOC-20241142620

PATIENT
  Age: 4 Decade
  Sex: Male

DRUGS (20)
  1. RILPIVIRINE [Suspect]
     Active Substance: RILPIVIRINE
     Indication: Product used for unknown indication
     Dosage: DOSE UNKNOWN
     Route: 030
     Dates: start: 202311, end: 202311
  2. RILPIVIRINE [Suspect]
     Active Substance: RILPIVIRINE
     Dosage: DOSE UNKNOWN
     Route: 030
     Dates: start: 202312, end: 202312
  3. RILPIVIRINE [Suspect]
     Active Substance: RILPIVIRINE
     Dosage: DOSE UNKNOWN
     Route: 030
     Dates: start: 202402, end: 202402
  4. RILPIVIRINE [Suspect]
     Active Substance: RILPIVIRINE
     Dosage: DOSE UNKNOWN
     Route: 030
     Dates: start: 202404, end: 202404
  5. RILPIVIRINE [Suspect]
     Active Substance: RILPIVIRINE
     Dosage: DOSE UNKNOWN
     Route: 030
     Dates: start: 202406, end: 202406
  6. RILPIVIRINE [Suspect]
     Active Substance: RILPIVIRINE
     Dosage: DOSE UNKNOWN
     Route: 030
     Dates: start: 202408, end: 202408
  7. RILPIVIRINE [Suspect]
     Active Substance: RILPIVIRINE
     Dosage: DOSE UNKNOWN
     Route: 030
     Dates: start: 202410, end: 202410
  8. RILPIVIRINE [Suspect]
     Active Substance: RILPIVIRINE
     Dosage: DOSE UNKNOWN
     Route: 030
     Dates: start: 202411
  9. VOCABRIA [Suspect]
     Active Substance: CABOTEGRAVIR SODIUM
     Indication: Product used for unknown indication
     Dosage: DOSE UNKNOWN
     Route: 030
     Dates: start: 202311, end: 202311
  10. VOCABRIA [Suspect]
     Active Substance: CABOTEGRAVIR SODIUM
     Dosage: DOSE UNKNOWN
     Route: 030
     Dates: start: 202312, end: 202312
  11. VOCABRIA [Suspect]
     Active Substance: CABOTEGRAVIR SODIUM
     Dosage: DOSE UNKNOWN
     Route: 030
     Dates: start: 202402, end: 202402
  12. VOCABRIA [Suspect]
     Active Substance: CABOTEGRAVIR SODIUM
     Dosage: DOSE UNKNOWN
     Route: 030
     Dates: start: 202404, end: 202404
  13. VOCABRIA [Suspect]
     Active Substance: CABOTEGRAVIR SODIUM
     Dosage: DOSE UNKNOWN
     Route: 030
     Dates: start: 202406, end: 202406
  14. VOCABRIA [Suspect]
     Active Substance: CABOTEGRAVIR SODIUM
     Dosage: DOSE UNKNOWN
     Route: 030
     Dates: start: 202408, end: 202408
  15. VOCABRIA [Suspect]
     Active Substance: CABOTEGRAVIR SODIUM
     Dosage: DOSE UNKNOWN
     Route: 030
     Dates: start: 202410, end: 202410
  16. VOCABRIA [Suspect]
     Active Substance: CABOTEGRAVIR SODIUM
     Dosage: DOSE UNKNOWN
     Route: 030
     Dates: start: 202411
  17. EDURANT [Concomitant]
     Active Substance: RILPIVIRINE HYDROCHLORIDE
     Indication: Product used for unknown indication
     Dosage: DOSE UNKNOWN
     Route: 048
     Dates: start: 202310, end: 2023
  18. VOCABRIA [Concomitant]
     Active Substance: CABOTEGRAVIR SODIUM
     Indication: Product used for unknown indication
     Dosage: DOSE UNKNOWN
     Route: 048
     Dates: start: 202310, end: 2023
  19. STRIBILD [Concomitant]
     Active Substance: COBICISTAT\ELVITEGRAVIR\EMTRICITABINE\TENOFOVIR DISOPROXIL FUMARATE
     Indication: Product used for unknown indication
     Route: 048
  20. GENVOYA [Concomitant]
     Active Substance: COBICISTAT\ELVITEGRAVIR\EMTRICITABINE\TENOFOVIR ALAFENAMIDE FUMARATE
     Indication: Product used for unknown indication
     Route: 048

REACTIONS (1)
  - White blood cell count decreased [Recovered/Resolved]

NARRATIVE: CASE EVENT DATE: 20240201
